FAERS Safety Report 16317511 (Version 3)
Quarter: 2019Q3

REPORT INFORMATION
  Report Type: Spontaneous
  Country: CA (occurrence: CA)
  Receive Date: 20190516
  Receipt Date: 20190904
  Transmission Date: 20191004
  Serious: Yes (Other)
  Sender: FDA-Public Use
  Company Number: CA-ABBVIE-18K-028-2511746-00

PATIENT
  Age: 51 Year
  Sex: Female

DRUGS (12)
  1. INFLECTRA [Suspect]
     Active Substance: INFLIXIMAB-DYYB
     Dosage: ONE TIME DOSE
     Route: 042
     Dates: start: 20180818, end: 20180818
  2. INFLECTRA [Suspect]
     Active Substance: INFLIXIMAB-DYYB
     Route: 042
     Dates: start: 20180921, end: 2018
  3. INFLIXIMAB [Suspect]
     Active Substance: INFLIXIMAB
     Indication: CROHN^S DISEASE
     Route: 042
  4. VITAMIN D [Concomitant]
     Active Substance: VITAMIN D NOS
     Indication: PRODUCT USED FOR UNKNOWN INDICATION
     Dosage: 1000 UNITS
  5. VITAMIN B12 [Concomitant]
     Active Substance: CYANOCOBALAMIN
     Indication: PRODUCT USED FOR UNKNOWN INDICATION
  6. IMURAN [Concomitant]
     Active Substance: AZATHIOPRINE
     Indication: PRODUCT USED FOR UNKNOWN INDICATION
     Route: 048
     Dates: start: 2014
  7. AZATHIOPRINE. [Concomitant]
     Active Substance: AZATHIOPRINE
     Indication: PRODUCT USED FOR UNKNOWN INDICATION
     Route: 048
  8. ERGOCALCIFEROL. [Concomitant]
     Active Substance: ERGOCALCIFEROL
     Indication: PRODUCT USED FOR UNKNOWN INDICATION
     Route: 065
  9. INFLECTRA [Suspect]
     Active Substance: INFLIXIMAB-DYYB
     Route: 042
     Dates: start: 20181219
  10. FLAGYL [Concomitant]
     Active Substance: METRONIDAZOLE\METRONIDAZOLE HYDROCHLORIDE
     Indication: PRODUCT USED FOR UNKNOWN INDICATION
     Route: 048
  11. HUMIRA [Suspect]
     Active Substance: ADALIMUMAB
     Indication: CROHN^S DISEASE
     Dosage: NOT REPORTED
     Route: 058
     Dates: start: 201704
  12. INFLECTRA [Suspect]
     Active Substance: INFLIXIMAB-DYYB
     Indication: CROHN^S DISEASE
     Dosage: 0, 2, 6 WEEKS EVERY 8 WEEKS
     Route: 042
     Dates: start: 20180119, end: 20180530

REACTIONS (46)
  - Exostosis [Unknown]
  - Weight increased [Unknown]
  - Drug level decreased [Unknown]
  - Vision blurred [Unknown]
  - Pain [Unknown]
  - Back pain [Unknown]
  - Drug level below therapeutic [Unknown]
  - Gait disturbance [Unknown]
  - Joint swelling [Unknown]
  - Arthropathy [Unknown]
  - Large intestine polyp [Unknown]
  - Drug level decreased [Unknown]
  - Anorectal disorder [Unknown]
  - Drug level below therapeutic [Unknown]
  - Constipation [Unknown]
  - Faecal calprotectin increased [Unknown]
  - Haematochezia [Unknown]
  - Aeromonas infection [Unknown]
  - Joint swelling [Unknown]
  - Gastrointestinal wall thickening [Unknown]
  - Abdominal pain [Unknown]
  - Kidney infection [Unknown]
  - Gastrointestinal inflammation [Unknown]
  - Colitis [Unknown]
  - Drug level decreased [Unknown]
  - Discharge [Unknown]
  - Vision blurred [Unknown]
  - Diarrhoea [Unknown]
  - Proctalgia [Unknown]
  - Facet joint syndrome [Unknown]
  - Vertigo [Unknown]
  - Tenderness [Unknown]
  - Diarrhoea [Unknown]
  - Anal fistula [Unknown]
  - Balance disorder [Unknown]
  - Photosensitivity reaction [Unknown]
  - Arthritis [Unknown]
  - Crohn^s disease [Unknown]
  - Abdominal discomfort [Unknown]
  - Scoliosis [Unknown]
  - Bowel movement irregularity [Unknown]
  - Anorectal disorder [Not Recovered/Not Resolved]
  - Anorectal stenosis [Unknown]
  - Drug resistance [Unknown]
  - Arthralgia [Unknown]
  - Infection [Unknown]

NARRATIVE: CASE EVENT DATE: 201705
